FAERS Safety Report 9502001 (Version 1)
Quarter: 2013Q3

REPORT INFORMATION
  Report Type: Spontaneous
  Country: US (occurrence: US)
  Receive Date: 20130905
  Receipt Date: 20130905
  Transmission Date: 20140515
  Serious: No
  Sender: FDA-Public Use
  Company Number: US-009507513-1308USA014704

PATIENT
  Sex: Female

DRUGS (1)
  1. VYTORIN [Suspect]
     Indication: BLOOD CHOLESTEROL INCREASED
     Dosage: 10/40MG TABLET, ONCE DAILY AT NIGHT
     Route: 048
     Dates: start: 201305, end: 20130823

REACTIONS (1)
  - Myalgia [Recovered/Resolved]
